FAERS Safety Report 7933383-6 (Version None)
Quarter: 2011Q4

REPORT INFORMATION
  Report Type: 
  Country: None (occurrence: None)
  Receive Date: 20111122
  Receipt Date: 20111122
  Transmission Date: 20120403
  Serious: No
  Sender: FDA-Public Use
  Company Number: None

PATIENT
  Age: 46 Year
  Sex: Female
  Weight: 99.79 kg

DRUGS (1)
  1. VENLAFAXINE [Suspect]
     Indication: DEPRESSION
     Dosage: 225MG - -3 X 75MG-
     Route: 048
     Dates: start: 20110820, end: 20111121

REACTIONS (13)
  - PARAESTHESIA [None]
  - ACNE [None]
  - WITHDRAWAL SYNDROME [None]
  - FEELING ABNORMAL [None]
  - HYPERTENSION [None]
  - NAUSEA [None]
  - DEPRESSED MOOD [None]
  - INCREASED APPETITE [None]
  - HEADACHE [None]
  - ERYTHEMA [None]
  - SOMNOLENCE [None]
  - IRRITABILITY [None]
  - MOOD ALTERED [None]
